FAERS Safety Report 5389834-7 (Version None)
Quarter: 2007Q3

REPORT INFORMATION
  Report Type: 
  Country: None (occurrence: None)
  Receive Date: 20070718
  Receipt Date: 20070711
  Transmission Date: 20080115
  Serious: Yes (Hospitalization)
  Sender: FDA-Public Use
  Company Number: PHBS2007JP11815

PATIENT
  Age: 39 Year
  Sex: Male

DRUGS (5)
  1. SIMULECT [Suspect]
     Indication: RENAL TRANSPLANT
     Dosage: 20 MG, UNK
     Route: 042
  2. TACROLIMUS [Suspect]
     Indication: RENAL TRANSPLANT
     Route: 065
  3. METHYLPREDNISOLONE [Suspect]
     Indication: RENAL TRANSPLANT
     Route: 065
  4. CELLCEPT [Suspect]
     Indication: RENAL TRANSPLANT
     Dosage: UNK, UNK
     Route: 048
  5. BREDININ [Suspect]
     Indication: RENAL TRANSPLANT
     Route: 048

REACTIONS (4)
  - CYTOMEGALOVIRUS ANTIGEN POSITIVE [None]
  - INFECTION [None]
  - LYMPHORRHOEA [None]
  - SUBCUTANEOUS ABSCESS [None]
